FAERS Safety Report 8613007-5 (Version None)
Quarter: 2012Q3

REPORT INFORMATION
  Report Type: 
  Country: None (occurrence: None)
  Receive Date: 20120822
  Receipt Date: 20120816
  Transmission Date: 20120928
  Serious: Yes (Other)
  Sender: FDA-Public Use
  Company Number: US-FRI-1000037919

PATIENT
  Age: 58 Year
  Sex: Female

DRUGS (2)
  1. CLONAZEPAM [Concomitant]
     Indication: INSOMNIA
  2. ESCITALOPRAM [Suspect]
     Indication: DEPRESSION
     Dosage: 20 MG
     Route: 048
     Dates: start: 20120423, end: 20120501

REACTIONS (3)
  - EMOTIONAL DISTRESS [None]
  - SUICIDE ATTEMPT [None]
  - SUICIDAL IDEATION [None]
